FAERS Safety Report 4714070-4 (Version None)
Quarter: 2005Q3

REPORT INFORMATION
  Report Type: 
  Country: None (occurrence: None)
  Receive Date: 20050713
  Receipt Date: 20050629
  Transmission Date: 20060218
  Serious: Yes (Death, Hospitalization)
  Sender: FDA-Public Use
  Company Number: 05-06-1166

PATIENT
  Age: 44 Year
  Sex: Female

DRUGS (14)
  1. NADOLOL [Suspect]
     Indication: HYPERTENSION
     Dosage: 40-80 MG BID ORAL
     Route: 048
     Dates: start: 20000201, end: 20011001
  2. LABETALOL [Concomitant]
  3. TRAMADOL HCL [Concomitant]
  4. PREDNISONE [Concomitant]
  5. ACETAMINOPHEN AND HYDROCODONE BITARTRATE [Concomitant]
  6. AMITRIPTYLINE HCL [Concomitant]
  7. DIPHENHYDRAMINE HCL [Concomitant]
  8. FERROUS SULFATE TAB [Concomitant]
  9. AMLODIPINE [Concomitant]
  10. DOXAZOSIN MESYLATE [Concomitant]
  11. MULTI-VITAMINS [Concomitant]
  12. PREDNISONE [Concomitant]
  13. CALCIUM CARBONATE [Concomitant]
  14. VITAMIN D [Concomitant]

REACTIONS (3)
  - HYPOTENSION [None]
  - PNEUMONIA [None]
  - THROMBOCYTOPENIA [None]
